FAERS Safety Report 13924836 (Version 1)
Quarter: 2017Q3

REPORT INFORMATION
  Report Type: Spontaneous
  Country: US (occurrence: US)
  Receive Date: 20170831
  Receipt Date: 20170831
  Transmission Date: 20171127
  Serious: Yes (Hospitalization, Other)
  Sender: FDA-Public Use
  Company Number: US-GLAXOSMITHKLINE-US2017134119

PATIENT
  Age: 73 Year
  Sex: Male

DRUGS (14)
  1. ADVAIR DISKUS [Suspect]
     Active Substance: FLUTICASONE PROPIONATE\SALMETEROL XINAFOATE
     Indication: CHRONIC OBSTRUCTIVE PULMONARY DISEASE
     Dosage: 1 PUFF(S), BID
  2. ADVAIR DISKUS [Suspect]
     Active Substance: FLUTICASONE PROPIONATE\SALMETEROL XINAFOATE
     Indication: EMPHYSEMA
  3. SENOKOT [Concomitant]
     Active Substance: SENNOSIDES
  4. DILANTIN [Concomitant]
     Active Substance: PHENYTOIN
  5. KEPPRA [Concomitant]
     Active Substance: LEVETIRACETAM
  6. PARLODEL [Concomitant]
     Active Substance: BROMOCRIPTINE MESYLATE
  7. VITAMIN B12 [Concomitant]
     Active Substance: CYANOCOBALAMIN
  8. VITAMIN D3 [Concomitant]
     Active Substance: CHOLECALCIFEROL
  9. LASIX [Concomitant]
     Active Substance: FUROSEMIDE
  10. REQUIP [Concomitant]
     Active Substance: ROPINIROLE HYDROCHLORIDE
  11. LEXAPRO [Concomitant]
     Active Substance: ESCITALOPRAM OXALATE
  12. MELATONIN [Concomitant]
     Active Substance: MELATONIN
  13. MIRALAX [Concomitant]
     Active Substance: POLYETHYLENE GLYCOL 3350
  14. RISPERDAL [Concomitant]
     Active Substance: RISPERIDONE
     Route: 042

REACTIONS (18)
  - Chronic obstructive pulmonary disease [Recovered/Resolved]
  - Dementia [Not Recovered/Not Resolved]
  - Somnolence [Recovered/Resolved]
  - Road traffic accident [Recovered/Resolved]
  - Anticonvulsant drug level increased [Recovered/Resolved]
  - Dyspnoea [Recovering/Resolving]
  - Oxygen saturation decreased [Recovering/Resolving]
  - Dehydration [Recovered/Resolved]
  - Product storage error [Unknown]
  - Pituitary tumour [Not Recovered/Not Resolved]
  - Hypotension [Not Recovered/Not Resolved]
  - Drug dose omission [Not Recovered/Not Resolved]
  - Acute kidney injury [Recovered/Resolved]
  - Drug administration error [Not Recovered/Not Resolved]
  - Device use issue [Not Recovered/Not Resolved]
  - Pneumonia [Recovered/Resolved]
  - Amnesia [Not Recovered/Not Resolved]
  - Underdose [Not Recovered/Not Resolved]

NARRATIVE: CASE EVENT DATE: 2001
